FAERS Safety Report 8305350-4 (Version None)
Quarter: 2012Q2

REPORT INFORMATION
  Report Type: 
  Country: None (occurrence: None)
  Receive Date: 20120423
  Receipt Date: 20120417
  Transmission Date: 20120825
  Serious: No
  Sender: FDA-Public Use
  Company Number: US-ABBOTT-12P-163-0926855-00

PATIENT
  Age: 51 Year
  Sex: Male
  Weight: 113.5 kg

DRUGS (9)
  1. BENICAR [Concomitant]
     Indication: HYPERTENSION
     Route: 048
  2. IBUPROFEN (ADVIL) [Concomitant]
     Indication: HEADACHE
  3. MUCINEX [Concomitant]
     Indication: HYPERSENSITIVITY
  4. COMBIVENT [Concomitant]
     Indication: ASTHMA
     Route: 055
  5. ASPIRIN [Concomitant]
     Indication: PRODUCT USED FOR UNKNOWN INDICATION
     Route: 048
  6. PERFOROMIST [Concomitant]
     Indication: ASTHMA
  7. TYLENOL (CAPLET) [Concomitant]
     Indication: HEADACHE
  8. ANDROGEL [Suspect]
     Indication: BLOOD TESTOSTERONE DECREASED
     Dosage: 3 PUMPS DAILY, 1 IN 1 DAY
     Route: 061
     Dates: start: 20120407, end: 20120414
  9. NASONEX [Concomitant]
     Indication: RHINITIS ALLERGIC

REACTIONS (4)
  - OEDEMA PERIPHERAL [None]
  - SWELLING FACE [None]
  - JOINT SWELLING [None]
  - RESPIRATORY DISORDER [None]
